FAERS Safety Report 21154805 (Version 1)
Quarter: 2022Q3

REPORT INFORMATION
  Report Type: Spontaneous
  Country: US (occurrence: US)
  Receive Date: 20220801
  Receipt Date: 20220801
  Transmission Date: 20221027
  Serious: No
  Sender: FDA-Public Use
  Company Number: US-JNJFOC-20220747546

PATIENT
  Age: 28 Year
  Sex: Female

DRUGS (12)
  1. STELARA [Suspect]
     Active Substance: USTEKINUMAB
     Indication: Crohn^s disease
     Route: 040
     Dates: start: 20220706
  2. RISPERIDONE [Concomitant]
     Active Substance: RISPERIDONE
  3. HYDROXYZINE [Concomitant]
     Active Substance: HYDROXYZINE HYDROCHLORIDE
  4. ADDERALL [Concomitant]
     Active Substance: AMPHETAMINE ASPARTATE\AMPHETAMINE SULFATE\DEXTROAMPHETAMINE SACCHARATE\DEXTROAMPHETAMINE SULFATE
  5. VITAMIN D3 [Concomitant]
     Active Substance: CHOLECALCIFEROL
  6. FAMOTIDINE [Concomitant]
     Active Substance: FAMOTIDINE
  7. PREDNISONE [Concomitant]
     Active Substance: PREDNISONE
  8. SUCRALFATE [Concomitant]
     Active Substance: SUCRALFATE
  9. DICYCLOMINE [Concomitant]
     Active Substance: DICYCLOMINE HYDROCHLORIDE
  10. FLUVOXAMINE [Concomitant]
     Active Substance: FLUVOXAMINE
  11. BUPROPION [Concomitant]
     Active Substance: BUPROPION
  12. BALSALAZIDE [Concomitant]
     Active Substance: BALSALAZIDE

REACTIONS (2)
  - Contusion [Unknown]
  - Nodule [Unknown]

NARRATIVE: CASE EVENT DATE: 20220711
